FAERS Safety Report 17580187 (Version 2)
Quarter: 2020Q2

REPORT INFORMATION
  Report Type: Spontaneous
  Country: CA (occurrence: CA)
  Receive Date: 20200325
  Receipt Date: 20200515
  Transmission Date: 20200713
  Serious: Yes (Hospitalization, Other)
  Sender: FDA-Public Use
  Company Number: CA-PFIZER INC-2020027587

PATIENT
  Age: 74 Year
  Sex: Female

DRUGS (3)
  1. NAPROXEN. [Concomitant]
     Active Substance: NAPROXEN
     Dosage: UNK
  2. XELJANZ [Suspect]
     Active Substance: TOFACITINIB CITRATE
     Indication: RHEUMATOID ARTHRITIS
     Dosage: 5 MG, 2X/DAY
     Route: 048
     Dates: start: 2019, end: 202002
  3. XELJANZ [Suspect]
     Active Substance: TOFACITINIB CITRATE
     Dosage: 5 MG, 2X/DAY
     Route: 048
     Dates: start: 20200304

REACTIONS (12)
  - Therapeutic product effect incomplete [Unknown]
  - Migraine [Unknown]
  - Arthralgia [Unknown]
  - Sensitivity to weather change [Recovered/Resolved]
  - Pain [Unknown]
  - Mobility decreased [Unknown]
  - Peripheral swelling [Unknown]
  - Nausea [Unknown]
  - Back pain [Unknown]
  - Intervertebral disc protrusion [Unknown]
  - Malaise [Recovered/Resolved]
  - Urinary retention [Unknown]
